FAERS Safety Report 5614170-0 (Version None)
Quarter: 2008Q1

REPORT INFORMATION
  Report Type: 
  Country: None (occurrence: None)
  Receive Date: 20080205
  Receipt Date: 20080129
  Transmission Date: 20080703
  Serious: Yes (Death)
  Sender: FDA-Public Use
  Company Number: B0498071A

PATIENT
  Age: 66 Year
  Sex: Male

DRUGS (4)
  1. ARIXTRA [Suspect]
     Indication: DIALYSIS
     Dosage: 2.5MG PER DAY
     Route: 058
     Dates: start: 20070517, end: 20070528
  2. DIALYSIS [Concomitant]
     Indication: HEPARIN-INDUCED THROMBOCYTOPENIA
     Dates: start: 20070401
  3. REFLUDAN [Concomitant]
     Indication: HEPARIN-INDUCED THROMBOCYTOPENIA
     Route: 042
     Dates: start: 20070410, end: 20070517
  4. HIRUDIN [Concomitant]
     Route: 042
     Dates: start: 20070410, end: 20070517

REACTIONS (2)
  - CEREBRAL HAEMORRHAGE [None]
  - HAEMORRHAGE [None]
